FAERS Safety Report 14640042 (Version 1)
Quarter: 2018Q1

REPORT INFORMATION
  Report Type: Spontaneous
  Country: US (occurrence: US)
  Receive Date: 20180315
  Receipt Date: 20180315
  Transmission Date: 20180509
  Serious: No
  Sender: FDA-Public Use
  Company Number: US-JNJFOC-20180236961

PATIENT
  Sex: Female

DRUGS (1)
  1. TYLENOL WITH CODEINE [Suspect]
     Active Substance: ACETAMINOPHEN\CODEINE PHOSPHATE
     Indication: PRODUCT USED FOR UNKNOWN INDICATION
     Route: 065

REACTIONS (7)
  - Nausea [Unknown]
  - Vomiting [Unknown]
  - Drug hypersensitivity [Unknown]
  - Pyrexia [Unknown]
  - Hyperhidrosis [Unknown]
  - Abdominal discomfort [Unknown]
  - Headache [Unknown]
